FAERS Safety Report 20848356 (Version 1)
Quarter: 2022Q2

REPORT INFORMATION
  Report Type: Spontaneous
  Country: US (occurrence: None)
  Receive Date: 20220518
  Receipt Date: 20220518
  Transmission Date: 20220721
  Serious: Yes (Hospitalization, Disabling)
  Sender: FDA-Public Use
  Company Number: None

PATIENT
  Age: 63 Year
  Sex: Female

DRUGS (1)
  1. ILUMYA [Suspect]
     Active Substance: TILDRAKIZUMAB-ASMN
     Dosage: OTHER FREQUENCY : N/A;?
     Route: 058
     Dates: start: 202201

REACTIONS (2)
  - Myocardial infarction [None]
  - Paralysis [None]

NARRATIVE: CASE EVENT DATE: 20220208
